FAERS Safety Report 11696112 (Version 2)
Quarter: 2016Q3

REPORT INFORMATION
  Report Type: Spontaneous
  Country: US (occurrence: US)
  Receive Date: 20151104
  Receipt Date: 20160830
  Transmission Date: 20161109
  Serious: Yes (Hospitalization, Other)
  Sender: FDA-Public Use
  Company Number: US-JNJFOC-20151100050

PATIENT
  Age: 45 Year
  Sex: Female

DRUGS (1)
  1. INVOKANA [Suspect]
     Active Substance: CANAGLIFLOZIN
     Indication: DIABETES MELLITUS
     Route: 048
     Dates: start: 20150408

REACTIONS (3)
  - Diabetic ketoacidosis [Unknown]
  - Acute kidney injury [Recovering/Resolving]
  - Myocardial infarction [Unknown]

NARRATIVE: CASE EVENT DATE: 20150421
